FAERS Safety Report 6197958-X (Version None)
Quarter: 2009Q2

REPORT INFORMATION
  Report Type: 
  Country: None (occurrence: None)
  Receive Date: 20090521
  Receipt Date: 20090511
  Transmission Date: 20091009
  Serious: Yes (Hospitalization)
  Sender: FDA-Public Use
  Company Number: B0574267A

PATIENT
  Age: 52 Year
  Sex: Male
  Weight: 58.2 kg

DRUGS (3)
  1. FLUTICASONE [Suspect]
     Route: 055
  2. SALMETEROL [Suspect]
     Route: 055
  3. PRANLUKAST [Concomitant]
     Route: 048

REACTIONS (23)
  - ABDOMINAL PAIN [None]
  - ALLERGIC GRANULOMATOUS ANGIITIS [None]
  - ASTHMA [None]
  - BLOOD IMMUNOGLOBULIN E INCREASED [None]
  - BRONCHIAL WALL THICKENING [None]
  - BRONCHOSTENOSIS [None]
  - C-REACTIVE PROTEIN INCREASED [None]
  - CHEST X-RAY ABNORMAL [None]
  - EOSINOPHIL COUNT INCREASED [None]
  - FLUID RETENTION [None]
  - HYPERTROPHY [None]
  - HYPOAESTHESIA [None]
  - INTERLEUKIN-2 RECEPTOR INCREASED [None]
  - LUNG HYPERINFLATION [None]
  - LYMPHADENOPATHY [None]
  - MONONEUROPATHY MULTIPLEX [None]
  - NODULE [None]
  - OCCULT BLOOD POSITIVE [None]
  - PULMONARY EOSINOPHILIA [None]
  - PYREXIA [None]
  - RHEUMATOID FACTOR POSITIVE [None]
  - SINUSITIS [None]
  - WHITE BLOOD CELL COUNT INCREASED [None]
